FAERS Safety Report 8917816 (Version 1)
Quarter: 2012Q4

REPORT INFORMATION
  Report Type: 
  Country: SE (occurrence: SE)
  Receive Date: 20121120
  Receipt Date: 20121120
  Transmission Date: 20130627
  Serious: Yes (Hospitalization, Disabling)
  Sender: FDA-Public Use
  Company Number: SE-PFIZER INC-2012287397

PATIENT
  Age: 72 Year
  Sex: Male
  Weight: 80.1 kg

DRUGS (16)
  1. GENOTROPIN [Suspect]
     Dosage: 0.2 mg, 1x/day, 7 injections/week
     Route: 058
     Dates: start: 20010206
  2. LEVOTHYROXINE [Concomitant]
     Indication: THYROID DISORDER
     Dosage: UNK
     Dates: start: 19840301
  3. LEVOTHYROXINE [Concomitant]
     Indication: PRIMARY HYPOTHYROIDISM
  4. FOLACIN [Concomitant]
     Indication: ADH DECREASED
     Dosage: UNK
     Dates: start: 19850801
  5. KARBAMAZEPIN [Concomitant]
     Indication: EPILEPSY
     Dosage: UNK
     Dates: start: 19900601
  6. DECADRON [Concomitant]
     Indication: ADH DECREASED
     Dosage: UNK
     Dates: start: 19941101
  7. TESTOVIRON-DEPOT [Concomitant]
     Indication: LUTEINISING HORMONE DEFICIENCY
     Dosage: UNK
     Dates: start: 19960216
  8. TESTOVIRON-DEPOT [Concomitant]
     Indication: FOLLICLE-STIMULATING HORMONE DEFICIENCY
  9. TESTOVIRON-DEPOT [Concomitant]
     Indication: TESTICULAR HYPOGONADISM
  10. DETRUSITOL [Concomitant]
     Indication: POLYURIA
     Dosage: UNK
     Dates: start: 19990214
  11. DESMOPRESSIN [Concomitant]
     Indication: POLYURIA
     Dosage: UNK
     Dates: start: 19990214
  12. FUNGIZONE [Concomitant]
     Indication: CANDIDIASIS
     Dosage: UNK
     Dates: start: 20000310
  13. NORPROLAC ^NOVARTIS^ [Concomitant]
     Indication: ENDOCRINE DISORDER
     Dosage: UNK
     Dates: start: 20001212
  14. TEGRETOL [Concomitant]
     Indication: EPILEPSY
     Dosage: UNK
     Dates: start: 20001212
  15. PLENDIL [Concomitant]
     Indication: HYPERTENSION
     Dosage: UNK
     Dates: start: 20010926
  16. TROMBYL [Concomitant]
     Dosage: UNK
     Dates: start: 20020418

REACTIONS (1)
  - Tachycardia [Unknown]
